FAERS Safety Report 16589456 (Version 4)
Quarter: 2019Q3

REPORT INFORMATION
  Report Type: Spontaneous
  Country: JP (occurrence: JP)
  Receive Date: 20190718
  Receipt Date: 20190806
  Transmission Date: 20191004
  Serious: Yes (Hospitalization, Other)
  Sender: FDA-Public Use
  Company Number: JP-ASTRAZENECA-2019SF00833

PATIENT
  Age: 23117 Day
  Sex: Female
  Weight: 38 kg

DRUGS (4)
  1. LIVALO [Concomitant]
     Active Substance: PITAVASTATIN CALCIUM
     Indication: TYPE 1 DIABETES MELLITUS
     Route: 048
     Dates: start: 20060726
  2. NOVORAPID [Suspect]
     Active Substance: INSULIN ASPART
     Indication: TYPE 1 DIABETES MELLITUS
     Dosage: 17 IU, THREE TIMES A DAY, 5U EACH IN THE MORNING AND AFTERNOON, 7U IN THE EVENING
     Route: 058
     Dates: start: 20060125, end: 20190510
  3. FORXIGA [Suspect]
     Active Substance: DAPAGLIFLOZIN
     Indication: TYPE 1 DIABETES MELLITUS
     Route: 048
     Dates: start: 20190511, end: 20190622
  4. NOVORAPID [Suspect]
     Active Substance: INSULIN ASPART
     Indication: TYPE 1 DIABETES MELLITUS
     Dosage: 14 IU, THREE TIMES A DAY, 4U EACH IN THE MORNING AND AFTERNOON, 6U IN THE EVENING
     Route: 058
     Dates: start: 20190511, end: 20190622

REACTIONS (3)
  - Dehydration [Recovered/Resolved]
  - Gastroenteritis [Recovered/Resolved]
  - Diabetic ketoacidosis [Recovered/Resolved]

NARRATIVE: CASE EVENT DATE: 20190623
